FAERS Safety Report 5804323-0 (Version None)
Quarter: 2008Q3

REPORT INFORMATION
  Report Type: 
  Country: None (occurrence: None)
  Receive Date: 20080707
  Receipt Date: 20080707
  Transmission Date: 20090109
  Serious: No
  Sender: FDA-Public Use
  Company Number: None

PATIENT

DRUGS (1)
  1. CARBAMIDE PEROXIDE GEL 35% VARIOUS [Suspect]
     Indication: DENTAL COSMETIC PROCEDURE

REACTIONS (4)
  - GINGIVAL DISORDER [None]
  - ORAL DISORDER [None]
  - SENSITIVITY OF TEETH [None]
  - THERMAL BURN [None]
